FAERS Safety Report 8743837 (Version 2)
Quarter: 2012Q4

REPORT INFORMATION
  Report Type: 
  Country: JP (occurrence: JP)
  Receive Date: 20120824
  Receipt Date: 20120920
  Transmission Date: 20130627
  Serious: Yes (Other)
  Sender: FDA-Public Use
  Company Number: JP-ROCHE-1101329

PATIENT
  Age: 1 Year

DRUGS (1)
  1. CEFTRIAXONE SODIUM [Suspect]
     Indication: SEPSIS
     Dosage: Dosage is uncertain.
     Route: 042

REACTIONS (1)
  - Ileus [Unknown]
